FAERS Safety Report 8884207 (Version 2)
Quarter: 2013Q4

REPORT INFORMATION
  Report Type: Spontaneous
  Country: US (occurrence: US)
  Receive Date: 20121102
  Receipt Date: 20131031
  Transmission Date: 20140711
  Serious: Yes (Other)
  Sender: FDA-Public Use
  Company Number: US-ROCHE-1149891

PATIENT
  Sex: Male

DRUGS (33)
  1. ACTEMRA [Suspect]
     Indication: RHEUMATOID ARTHRITIS
     Route: 042
     Dates: start: 20120824
  2. OXYCONTIN [Concomitant]
     Route: 065
     Dates: start: 20120321
  3. OXYCONTIN [Concomitant]
     Route: 065
     Dates: start: 20120524
  4. OXYCONTIN [Concomitant]
     Route: 065
     Dates: start: 20120824
  5. PREDNISOLONE [Concomitant]
     Route: 065
     Dates: start: 20120321
  6. PREDNISOLONE [Concomitant]
     Route: 065
     Dates: start: 20120718
  7. PREDNISOLONE [Concomitant]
     Route: 065
     Dates: start: 20120807
  8. MELOXICAM [Concomitant]
  9. LISINOPRIL [Concomitant]
     Route: 065
  10. ASPIRIN [Concomitant]
     Route: 065
     Dates: start: 20120220
  11. OXYCODONE/APAP [Concomitant]
  12. VIMOVO [Concomitant]
     Route: 065
  13. FOLIC ACID [Concomitant]
     Route: 065
  14. LOVENOX [Concomitant]
  15. FOLVITE [Concomitant]
  16. PRINIVIL [Concomitant]
  17. NAPROSYN [Concomitant]
  18. ZOFRAN [Concomitant]
  19. DELTASONE [Concomitant]
  20. ZESTRIL [Concomitant]
  21. VITAMIN B-100 [Concomitant]
  22. CIPRO [Concomitant]
     Route: 065
  23. CYMBALTA [Concomitant]
     Route: 065
     Dates: start: 20120622
  24. JALYN [Concomitant]
  25. SOLU-CORTEF [Concomitant]
     Route: 065
  26. EPINEPHRINE [Concomitant]
  27. BENADRYL (UNITED STATES) [Concomitant]
     Route: 065
  28. PEPCID [Concomitant]
     Route: 065
  29. HYDROCORTISONE [Concomitant]
     Route: 065
  30. COUMADIN [Concomitant]
  31. KENALOG (UNITED STATES) [Concomitant]
     Route: 030
  32. FLOMAX (UNITED STATES) [Concomitant]
     Route: 065
     Dates: start: 20120723
  33. NEURONTIN (UNITED STATES) [Concomitant]
     Route: 065
     Dates: start: 20120524

REACTIONS (21)
  - Anaphylactic reaction [Unknown]
  - Renal failure chronic [Unknown]
  - Urinary hesitation [Unknown]
  - Pruritus [Unknown]
  - Dyspnoea [Recovered/Resolved]
  - Hypotension [Unknown]
  - Fatigue [Unknown]
  - Muscular weakness [Unknown]
  - Muscle spasms [Unknown]
  - Skin lesion [Unknown]
  - Skin mass [Unknown]
  - Testicular swelling [Unknown]
  - Somnolence [Unknown]
  - Chest pain [Unknown]
  - Rash [Unknown]
  - Flushing [Unknown]
  - Feeling hot [Unknown]
  - Generalised erythema [Unknown]
  - Blood pressure decreased [Unknown]
  - Dyspnoea [Unknown]
  - Anaphylactic reaction [Unknown]
